FAERS Safety Report 7205455-5 (Version None)
Quarter: 2010Q4

REPORT INFORMATION
  Report Type: 
  Country: None (occurrence: None)
  Receive Date: 20101231
  Receipt Date: 20101227
  Transmission Date: 20110411
  Serious: Yes (Death, Hospitalization, Other)
  Sender: FDA-Public Use
  Company Number: PHHY2010IL58993

PATIENT
  Age: 62 Year
  Sex: Female

DRUGS (1)
  1. SANDOSTATIN LAR [Suspect]
     Indication: CARCINOID SYNDROME
     Dosage: 30 MG, EVERY 14 DAYS
     Dates: start: 20100905, end: 20101128

REACTIONS (4)
  - CONCOMITANT DISEASE AGGRAVATED [None]
  - MALIGNANT NEOPLASM PROGRESSION [None]
  - NEPHROSTOMY [None]
  - RECTAL HAEMORRHAGE [None]
